FAERS Safety Report 4786275-8 (Version None)
Quarter: 2005Q3

REPORT INFORMATION
  Report Type: 
  Country: None (occurrence: None)
  Receive Date: 20050929
  Receipt Date: 20050127
  Transmission Date: 20060218
  Serious: Yes (Death)
  Sender: FDA-Public Use
  Company Number: 393696

PATIENT
  Age: 74 Year
  Sex: Male

DRUGS (1)
  1. DEMADEX [Suspect]
     Indication: FLUID RETENTION
     Dosage: 100 MG DAILY ORAL
     Route: 048

REACTIONS (1)
  - DEATH [None]
